FAERS Safety Report 17230119 (Version 2)
Quarter: 2020Q1

REPORT INFORMATION
  Report Type: Spontaneous
  Country: PL (occurrence: PL)
  Receive Date: 20200103
  Receipt Date: 20200224
  Transmission Date: 20200409
  Serious: Yes (Life-Threatening, Hospitalization, Other)
  Sender: FDA-Public Use
  Company Number: PL-ASTRAZENECA-2019SF92227

PATIENT
  Age: 38 Year
  Sex: Female

DRUGS (13)
  1. VANCOMYCIN [Suspect]
     Active Substance: VANCOMYCIN
     Route: 048
  2. CLOPIDOGREL [Interacting]
     Active Substance: CLOPIDOGREL BISULFATE
     Indication: ANEURYSM REPAIR
     Dosage: DAILY
     Route: 048
  3. FENTANYL. [Suspect]
     Active Substance: FENTANYL
     Route: 065
  4. GENTAMICIN. [Suspect]
     Active Substance: GENTAMICIN
     Route: 065
  5. MEROPENEM. [Suspect]
     Active Substance: MEROPENEM
     Route: 048
  6. PROPOFOL. [Suspect]
     Active Substance: PROPOFOL
     Route: 042
  7. CLINDAMYCIN. [Suspect]
     Active Substance: CLINDAMYCIN
     Route: 065
  8. NYSTATIN. [Concomitant]
     Active Substance: NYSTATIN
     Route: 065
  9. CEFUROXIME. [Suspect]
     Active Substance: CEFUROXIME
     Indication: ABSCESS NECK
     Route: 065
  10. OMEPRAZOLE. [Suspect]
     Active Substance: OMEPRAZOLE
     Route: 048
  11. ACETYLSALICYLIC ACID [Interacting]
     Active Substance: ASPIRIN
     Indication: ANTICOAGULANT THERAPY
     Route: 065
  12. FLUCONAZOLE. [Suspect]
     Active Substance: FLUCONAZOLE
     Route: 048
  13. COLISTIMETHATE SODIUM. [Suspect]
     Active Substance: COLISTIMETHATE SODIUM
     Dosage: DAILY
     Route: 065

REACTIONS (14)
  - Haematemesis [Recovered/Resolved]
  - Anaemia [Recovered/Resolved]
  - Gastrointestinal haemorrhage [Recovered/Resolved]
  - Multiple organ dysfunction syndrome [Recovered/Resolved]
  - Mobility decreased [Recovered/Resolved]
  - Drug interaction [Recovered/Resolved]
  - Gastric ulcer [Recovered/Resolved]
  - Drug ineffective [Unknown]
  - Acute respiratory failure [Recovered/Resolved]
  - Sepsis syndrome [Unknown]
  - Septic shock [Recovered/Resolved]
  - Abscess neck [Recovered/Resolved]
  - Shock haemorrhagic [Recovered/Resolved]
  - Cellulitis [Unknown]
